FAERS Safety Report 6547345-7 (Version None)
Quarter: 2010Q1

REPORT INFORMATION
  Report Type: 
  Country: None (occurrence: None)
  Receive Date: 20100122
  Receipt Date: 20100111
  Transmission Date: 20100710
  Serious: Yes (Other)
  Sender: FDA-Public Use
  Company Number: CA-JNJFOC-20100104722

PATIENT
  Sex: Female

DRUGS (2)
  1. EXTRA STRENGTH TYLENOL [Suspect]
     Route: 048
  2. EXTRA STRENGTH TYLENOL [Suspect]
     Indication: DRUG USE FOR UNKNOWN INDICATION
     Route: 048

REACTIONS (6)
  - EYE DISCHARGE [None]
  - EYE SWELLING [None]
  - OCULAR HYPERAEMIA [None]
  - REACTION TO DRUG EXCIPIENTS [None]
  - RESPIRATORY DISORDER [None]
  - VISION BLURRED [None]
